FAERS Safety Report 4990890-6 (Version None)
Quarter: 2006Q2

REPORT INFORMATION
  Report Type: 
  Country: None (occurrence: None)
  Receive Date: 20060428
  Receipt Date: 20060419
  Transmission Date: 20061013
  Serious: Yes (Other)
  Sender: FDA-Public Use
  Company Number: HQWYE216603NOV04

PATIENT
  Age: 54 Year
  Sex: Female

DRUGS (2)
  1. PREMPRO [Suspect]
  2. PREMARIN [Suspect]

REACTIONS (8)
  - BREAST CANCER FEMALE [None]
  - BREAST CANCER METASTATIC [None]
  - BREAST INDURATION [None]
  - COLON GANGRENE [None]
  - LYMPHOEDEMA [None]
  - METASTASES TO LYMPH NODES [None]
  - NEUTROPENIA [None]
  - POST PROCEDURAL COMPLICATION [None]
